FAERS Safety Report 20963505 (Version 13)
Quarter: 2025Q3

REPORT INFORMATION
  Report Type: Report from Study
  Country: US (occurrence: US)
  Receive Date: 20220615
  Receipt Date: 20250716
  Transmission Date: 20251021
  Serious: Yes (Hospitalization, Other)
  Sender: TAKEDA
  Company Number: US-TAKEDA-US202003706

PATIENT
  Sex: Male

DRUGS (5)
  1. HUMAN IMMUNOGLOBULIN G [Suspect]
     Active Substance: HUMAN IMMUNOGLOBULIN G
     Indication: Primary immunodeficiency syndrome
  2. HUMAN IMMUNOGLOBULIN G [Suspect]
     Active Substance: HUMAN IMMUNOGLOBULIN G
     Indication: Bruton^s agammaglobulinaemia
     Dosage: 20 GRAM, MONTHLY
  3. HUMAN IMMUNOGLOBULIN G [Suspect]
     Active Substance: HUMAN IMMUNOGLOBULIN G
     Dosage: 20 GRAM, MONTHLY
  4. COVID-19 VACCINE NOS [Suspect]
     Active Substance: COVID-19 VACCINE
     Indication: COVID-19 immunisation
  5. PROBIOTICS NOS [Suspect]
     Active Substance: PROBIOTICS NOS
     Indication: Product used for unknown indication

REACTIONS (25)
  - Gastrointestinal inflammation [Unknown]
  - Gastrointestinal haemorrhage [Unknown]
  - Crohn^s disease [Unknown]
  - Salmonellosis [Unknown]
  - Rash papular [Unknown]
  - Gastroenteritis viral [Unknown]
  - Brain fog [Unknown]
  - Product use in unapproved indication [Unknown]
  - Blood immunoglobulin G decreased [Unknown]
  - Blood immunoglobulin A decreased [Unknown]
  - Multiple allergies [Unknown]
  - Iron deficiency [Unknown]
  - Nasopharyngitis [Unknown]
  - Body temperature decreased [Unknown]
  - Irritable bowel syndrome [Unknown]
  - Escherichia infection [Unknown]
  - Abdominal discomfort [Unknown]
  - Nasal congestion [Unknown]
  - Anaemia [Unknown]
  - Anxiety [Unknown]
  - Malaise [Unknown]
  - Fatigue [Unknown]
  - Headache [Unknown]
  - Influenza like illness [Recovering/Resolving]
  - Diarrhoea [Unknown]
